FAERS Safety Report 11932398 (Version 1)
Quarter: 2016Q1

REPORT INFORMATION
  Report Type: Spontaneous
  Country: BE (occurrence: BE)
  Receive Date: 20160120
  Receipt Date: 20160120
  Transmission Date: 20160526
  Serious: Yes (Death, Other)
  Sender: FDA-Public Use
  Company Number: PHHY2016BE005985

PATIENT
  Sex: Female

DRUGS (4)
  1. SIMULECT [Suspect]
     Active Substance: BASILIXIMAB
     Indication: INTESTINAL TRANSPLANT
     Route: 065
  2. TACROLIMUS. [Suspect]
     Active Substance: TACROLIMUS
     Indication: IMMUNOSUPPRESSANT DRUG THERAPY
  3. SIMULECT [Suspect]
     Active Substance: BASILIXIMAB
     Indication: IMMUNOSUPPRESSANT DRUG THERAPY
  4. TACROLIMUS. [Suspect]
     Active Substance: TACROLIMUS
     Indication: INTESTINAL TRANSPLANT
     Route: 065

REACTIONS (3)
  - Graft loss [Unknown]
  - Intestine transplant rejection [Unknown]
  - Gastrointestinal disorder [Fatal]
